FAERS Safety Report 4996471-2 (Version None)
Quarter: 2006Q2

REPORT INFORMATION
  Report Type: 
  Country: None (occurrence: None)
  Receive Date: 20060509
  Receipt Date: 20060427
  Transmission Date: 20061013
  Serious: Yes (Disabling)
  Sender: FDA-Public Use
  Company Number: GB-JNJFOC-20060406038

PATIENT
  Age: 61 Year
  Sex: Male
  Weight: 54 kg

DRUGS (5)
  1. REMICADE [Suspect]
     Indication: DRUG USE FOR UNKNOWN INDICATION
     Route: 042
  2. CIPROFLOXACIN [Concomitant]
     Route: 048
  3. METRONIDAZOLE [Concomitant]
     Route: 048
  4. CEFUROXIME [Concomitant]
     Route: 042
  5. GENTAMICIN [Concomitant]
     Route: 042

REACTIONS (3)
  - ASTHENIA [None]
  - NEUROPATHY PERIPHERAL [None]
  - PERIPHERAL SENSORY NEUROPATHY [None]
